FAERS Safety Report 5844901-6 (Version None)
Quarter: 2008Q3

REPORT INFORMATION
  Report Type: 
  Country: None (occurrence: None)
  Receive Date: 20080813
  Receipt Date: 20080813
  Transmission Date: 20090109
  Serious: Yes (Life-Threatening, Hospitalization, Other)
  Sender: FDA-Public Use
  Company Number: None

PATIENT
  Age: 49 Year
  Sex: Female
  Weight: 72.5755 kg

DRUGS (1)
  1. CAMPRAL [Suspect]
     Indication: ALCOHOL USE
     Dosage: 333 MG. 2 TABLETS 3 TIMES DAILY PO
     Route: 048
     Dates: start: 20080717, end: 20080724

REACTIONS (13)
  - AMNESIA [None]
  - ANXIETY [None]
  - CONFUSIONAL STATE [None]
  - DEPRESSION [None]
  - GRAND MAL CONVULSION [None]
  - HYPOTENSION [None]
  - INCONTINENCE [None]
  - INSOMNIA [None]
  - MOUTH HAEMORRHAGE [None]
  - RESPIRATION ABNORMAL [None]
  - TACHYCARDIA [None]
  - TONGUE INJURY [None]
  - UNRESPONSIVE TO STIMULI [None]
